FAERS Safety Report 17116621 (Version 2)
Quarter: 2020Q1

REPORT INFORMATION
  Report Type: Spontaneous
  Country: PT (occurrence: PT)
  Receive Date: 20191205
  Receipt Date: 20200131
  Transmission Date: 20200409
  Serious: Yes (Life-Threatening, Other)
  Sender: FDA-Public Use
  Company Number: PT-MYLANLABS-2019M1118744

PATIENT
  Age: 80 Year
  Sex: Male
  Weight: 60 kg

DRUGS (11)
  1. FENTANYL. [Suspect]
     Active Substance: FENTANYL
     Indication: INDUCTION OF ANAESTHESIA
     Dosage: 100 MICROGRAM
  2. PROPOFOL. [Interacting]
     Active Substance: PROPOFOL
     Indication: INDUCTION OF ANAESTHESIA
     Dosage: 150 MILLIGRAM
  3. PARECOXIB [Concomitant]
     Active Substance: PARECOXIB
     Indication: PRODUCT USED FOR UNKNOWN INDICATION
     Dosage: 40 MILLIGRAM
  4. FENTANYL. [Interacting]
     Active Substance: FENTANYL
     Dosage: 150 MICROGRAM
  5. ROCURONIUM [Interacting]
     Active Substance: ROCURONIUM BROMIDE
     Dosage: 50 MILLIGRAM
  6. REMIFENTANIL [Interacting]
     Active Substance: REMIFENTANIL
     Indication: MAINTENANCE OF ANAESTHESIA
     Dosage: 0.15 MICROGRAM/KILOGRAM
     Route: 005
  7. ROCURONIUM [Interacting]
     Active Substance: ROCURONIUM BROMIDE
     Indication: INDUCTION OF ANAESTHESIA
     Dosage: 20 MILLIGRAM
  8. PARACETAMOL [Interacting]
     Active Substance: ACETAMINOPHEN
     Indication: PRODUCT USED FOR UNKNOWN INDICATION
     Dosage: 1000 MILLIGRAM
  9. MIDAZOLAM HYDROCHLORIDE. [Interacting]
     Active Substance: MIDAZOLAM HYDROCHLORIDE
     Indication: PREMEDICATION
     Dosage: 3 MILLIGRAM
     Dates: start: 20180614, end: 20180614
  10. SEVOFLURANE. [Interacting]
     Active Substance: SEVOFLURANE
     Indication: MAINTENANCE OF ANAESTHESIA
     Dosage: 1,0-1,2 PERCENT IN A MIX OF 45 PERCENT F O2 AND AIR.
     Route: 055
  11. METAMIZOLE [Interacting]
     Active Substance: METAMIZOLE
     Indication: PRODUCT USED FOR UNKNOWN INDICATION
     Dosage: 2000 MILLIGRAM

REACTIONS (2)
  - Neuromuscular block prolonged [Recovered/Resolved]
  - Drug interaction [Unknown]
